FAERS Safety Report 9166833 (Version 1)
Quarter: 2012Q4

REPORT INFORMATION
  Report Type: 
  Country: US (occurrence: US)
  Receive Date: 20121031
  Receipt Date: 20121031
  Transmission Date: 20130627
  Serious: Yes (Other)
  Sender: FDA-Public Use
  Company Number: US-RB-044414-12

PATIENT
  Age: 41 Year
  Sex: Male

DRUGS (8)
  1. SUBOXONE TABLET [Suspect]
     Indication: DRUG DEPENDENCE
     Route: 060
     Dates: start: 2011, end: 2011
  2. SUBOXONE FILM [Suspect]
     Indication: DRUG DEPENDENCE
     Dosage: Suboxone film
     Route: 060
     Dates: start: 2011, end: 201207
  3. SUBOXONE FILM [Suspect]
     Dosage: Suboxone film
     Route: 060
     Dates: start: 201208
  4. XANAX [Suspect]
     Indication: ANXIETY
     Route: 048
     Dates: end: 201207
  5. XANAX [Suspect]
     Route: 065
     Dates: start: 201208
  6. DIET PILLS [Suspect]
     Indication: PRODUCT USED FOR UNKNOWN INDICATION
     Dosage: Dosing details unknown
     Route: 065
  7. ALTACE [Concomitant]
     Indication: HYPERTENSION
     Dosage: Dosing details unknown
     Route: 065
  8. FLUID PILL (NAME UNKNOWN) [Concomitant]
     Indication: FLUID RETENTION
     Dosage: Dosing details unknown
     Route: 065

REACTIONS (5)
  - Substance abuse [Recovered/Resolved]
  - Weight decreased [Unknown]
  - Convulsion [Recovered/Resolved]
  - Influenza like illness [Recovered/Resolved]
  - Drug withdrawal syndrome [Recovered/Resolved]
